FAERS Safety Report 9941300 (Version 2)
Quarter: 2014Q1

REPORT INFORMATION
  Report Type: Report from Study
  Country: US (occurrence: US)
  Receive Date: 20140303
  Receipt Date: 20140303
  Transmission Date: 20141002
  Serious: No
  Sender: FDA-Public Use
  Company Number: US-ABBVIE-12P-163-1028644-00

PATIENT
  Age: 55 Year
  Sex: Female

DRUGS (8)
  1. HUMIRA [Suspect]
     Indication: PSORIASIS
     Route: 058
     Dates: start: 201212
  2. ALBUTEROL [Concomitant]
     Indication: ASTHMA
     Dosage: INHALER AND NEBULIZER
     Route: 055
  3. SINGULAIR [Concomitant]
     Indication: HYPERSENSITIVITY
  4. SPIRIVA [Concomitant]
     Indication: ASTHMA
     Route: 055
  5. OXYGEN [Concomitant]
     Indication: SLEEP DISORDER
  6. OXYGEN [Concomitant]
     Indication: DYSPNOEA EXERTIONAL
  7. DIOVAN [Concomitant]
     Indication: BLOOD PRESSURE
  8. LASIX [Concomitant]
     Indication: DIURETIC THERAPY

REACTIONS (5)
  - Feeling abnormal [Not Recovered/Not Resolved]
  - Psoriasis [Unknown]
  - Dry skin [Not Recovered/Not Resolved]
  - Pain [Not Recovered/Not Resolved]
  - Pruritus [Not Recovered/Not Resolved]
